FAERS Safety Report 9327217 (Version 3)
Quarter: 2013Q3

REPORT INFORMATION
  Report Type: Spontaneous
  Country: US (occurrence: US)
  Receive Date: 20130604
  Receipt Date: 20130704
  Transmission Date: 20140515
  Serious: No
  Sender: FDA-Public Use
  Company Number: US-PFIZER INC-2013166416

PATIENT
  Sex: 0

DRUGS (1)
  1. TETRACYCLINE HCL [Suspect]
     Dosage: UNK
     Dates: start: 1960

REACTIONS (2)
  - Product label issue [Unknown]
  - Tooth discolouration [Not Recovered/Not Resolved]
